FAERS Safety Report 8297173-X (Version None)
Quarter: 2012Q2

REPORT INFORMATION
  Report Type: 
  Country: None (occurrence: None)
  Receive Date: 20120419
  Receipt Date: 20120416
  Transmission Date: 20120825
  Serious: No
  Sender: FDA-Public Use
  Company Number: US-PFIZER INC-2012093780

PATIENT
  Sex: Female

DRUGS (2)
  1. NORVASC [Suspect]
  2. ZOLOFT [Suspect]

REACTIONS (2)
  - PANIC ATTACK [None]
  - HYPERTENSION [None]
